FAERS Safety Report 16059078 (Version 1)
Quarter: 2019Q1

REPORT INFORMATION
  Report Type: Spontaneous
  Country: FR (occurrence: FR)
  Receive Date: 20190311
  Receipt Date: 20190311
  Transmission Date: 20190418
  Serious: Yes (Disabling)
  Sender: FDA-Public Use
  Company Number: FR-MYLANLABS-2019M1021503

PATIENT
  Age: 87 Year
  Sex: Female
  Weight: 57 kg

DRUGS (2)
  1. DEXAMETHASONE MYLAN 20 MG/5 ML, SOLUTION INJECTABLE EN AMPOULE [Suspect]
     Active Substance: DEXAMETHASONE
     Indication: PLASMA CELL MYELOMA
     Dosage: 20 MILLIGRAM, QW (10 MG PAR SEMAINE ? PARTIR DU 12/04/2018)
     Route: 042
     Dates: start: 20180122
  2. REVLIMID [Suspect]
     Active Substance: LENALIDOMIDE
     Indication: PLASMA CELL MYELOMA
     Dosage: 25 MILLIGRAM, QD (21 JOURS/28)
     Route: 048
     Dates: start: 20180122

REACTIONS (7)
  - Muscle spasms [Not Recovered/Not Resolved]
  - Ecchymosis [Not Recovered/Not Resolved]
  - Alopecia [Not Recovered/Not Resolved]
  - Visual acuity reduced [Not Recovered/Not Resolved]
  - Dizziness [Not Recovered/Not Resolved]
  - Hypoacusis [Not Recovered/Not Resolved]
  - Neuropathy peripheral [Not Recovered/Not Resolved]

NARRATIVE: CASE EVENT DATE: 2018
